FAERS Safety Report 11318559 (Version 1)
Quarter: 2015Q3

REPORT INFORMATION
  Report Type: Spontaneous
  Country: HK (occurrence: HK)
  Receive Date: 20150729
  Receipt Date: 20150729
  Transmission Date: 20151125
  Serious: Yes (Other)
  Sender: FDA-Public Use
  Company Number: HK-ALVOGEN-2015AL002941

PATIENT
  Age: 39 Year
  Sex: Male

DRUGS (19)
  1. IFOSFAMIDE. [Suspect]
     Active Substance: IFOSFAMIDE
     Indication: CHEMOTHERAPY
  2. CYTARABINE. [Suspect]
     Active Substance: CYTARABINE
     Indication: BURKITT^S LYMPHOMA STAGE IV
  3. METHOTREXATE [Suspect]
     Active Substance: METHOTREXATE
     Indication: NERVOUS SYSTEM DISORDER
     Route: 042
  4. LAMIVUDINE. [Concomitant]
     Active Substance: LAMIVUDINE
     Indication: CHEMOTHERAPY
  5. DOXORUBICIN [Suspect]
     Active Substance: DOXORUBICIN
     Indication: CHEMOTHERAPY
  6. VINCRISTINE [Suspect]
     Active Substance: VINCRISTINE
     Indication: BURKITT^S LYMPHOMA STAGE IV
  7. DOXORUBICIN [Suspect]
     Active Substance: DOXORUBICIN
     Indication: BURKITT^S LYMPHOMA STAGE IV
  8. INDINAVIR [Concomitant]
     Active Substance: INDINAVIR
     Indication: CHEMOTHERAPY
  9. ETOPOSIDE. [Suspect]
     Active Substance: ETOPOSIDE
     Indication: CHEMOTHERAPY
  10. VINCRISTINE [Suspect]
     Active Substance: VINCRISTINE
     Indication: CHEMOTHERAPY
  11. STAVUDINE. [Concomitant]
     Active Substance: STAVUDINE
     Indication: CHEMOTHERAPY
  12. CYCLOPHOSPHAMIDE. [Suspect]
     Active Substance: CYCLOPHOSPHAMIDE
     Indication: BURKITT^S LYMPHOMA STAGE IV
  13. METHOTREXATE [Suspect]
     Active Substance: METHOTREXATE
     Indication: NERVOUS SYSTEM DISORDER
     Route: 037
  14. CYTARABINE. [Suspect]
     Active Substance: CYTARABINE
     Indication: CHEMOTHERAPY
  15. HYDROCORTISONE. [Suspect]
     Active Substance: HYDROCORTISONE
     Indication: NERVOUS SYSTEM DISORDER
  16. CYTARABINE. [Suspect]
     Active Substance: CYTARABINE
     Indication: NERVOUS SYSTEM DISORDER
  17. ETOPOSIDE. [Suspect]
     Active Substance: ETOPOSIDE
     Indication: BURKITT^S LYMPHOMA STAGE IV
  18. CYCLOPHOSPHAMIDE. [Suspect]
     Active Substance: CYCLOPHOSPHAMIDE
     Indication: CHEMOTHERAPY
  19. METHOTREXATE [Suspect]
     Active Substance: METHOTREXATE
     Indication: BURKITT^S LYMPHOMA STAGE IV

REACTIONS (5)
  - Subcutaneous abscess [Unknown]
  - Neuropathy peripheral [None]
  - Mucosal inflammation [Unknown]
  - Febrile neutropenia [Recovered/Resolved]
  - Diarrhoea haemorrhagic [Unknown]
